FAERS Safety Report 18200917 (Version 1)
Quarter: 2020Q3

REPORT INFORMATION
  Report Type: Spontaneous
  Country: CA (occurrence: CA)
  Receive Date: 20200827
  Receipt Date: 20200827
  Transmission Date: 20201104
  Serious: Yes (Other)
  Sender: FDA-Public Use
  Company Number: CA-ROCHE-2664318

PATIENT

DRUGS (2)
  1. ALECTINIB. [Suspect]
     Active Substance: ALECTINIB
     Indication: NON-SMALL CELL LUNG CANCER
     Route: 065
  2. CRIZOTINIB [Suspect]
     Active Substance: CRIZOTINIB
     Indication: PRODUCT USED FOR UNKNOWN INDICATION
     Dosage: 2X/DAY
     Route: 065
     Dates: start: 20151001

REACTIONS (2)
  - Neuropathy peripheral [Unknown]
  - Oedema [Unknown]
